FAERS Safety Report 8841238 (Version 2)
Quarter: 2014Q1

REPORT INFORMATION
  Report Type: Spontaneous
  Country: US (occurrence: JP)
  Receive Date: 20121015
  Receipt Date: 20140327
  Transmission Date: 20141002
  Serious: Yes (Hospitalization, Disabling)
  Sender: FDA-Public Use
  Company Number: JP-GE HEALTHCARE MEDICAL DIAGNOSTICS-OSCN-NO-0709S-0361

PATIENT
  Age: 14 Year
  Sex: Male

DRUGS (13)
  1. OMNISCAN [Suspect]
     Indication: GLAUCOMA
     Route: 042
     Dates: start: 20060904, end: 20060904
  2. OMNISCAN [Suspect]
     Indication: RETINAL NEOPLASM
     Route: 042
     Dates: start: 20061228, end: 20061228
  3. OMNISCAN [Suspect]
     Route: 042
     Dates: start: 20070112, end: 20070112
  4. GADOPENTETATE DIMEGLUMINE [Suspect]
     Dosage: DOSE NOT REPORTED
     Route: 065
  5. EPOETIN [Concomitant]
     Indication: NEPHROGENIC ANAEMIA
     Route: 058
  6. FAMOTIDINE (GASTER) [Concomitant]
     Indication: PROPHYLAXIS
     Route: 042
     Dates: start: 20070124, end: 20070124
  7. CEFMETAZOLE SODIUM (CEFMETAZON) [Concomitant]
     Indication: PROPHYLAXIS
     Route: 042
     Dates: end: 20070123
  8. PENTAZOCINE (SOSEGON) [Concomitant]
     Indication: PAIN
     Route: 042
  9. ALFACALCIDOL (ONEALFA) [Concomitant]
     Indication: OSTEOSIS
     Route: 048
  10. FERROUS CITRATE (FEROMIA) [Concomitant]
     Indication: ANAEMIA
     Route: 048
  11. ALLOPURINOL (ZYLORIC) [Concomitant]
     Indication: HYPERURICAEMIA
     Route: 048
  12. AMLODIPINE BESILATE (AMLODIN) [Concomitant]
     Indication: HYPERTENSION
     Route: 048
  13. CANDESARTAN CILEXETIL (BLOPRESS) [Concomitant]
     Route: 048
     Dates: start: 20070117

REACTIONS (13)
  - Nephrogenic systemic fibrosis [Recovered/Resolved]
  - Pain in extremity [Unknown]
  - Skin induration [Recovered/Resolved]
  - Muscle contracture [Recovered/Resolved]
  - Pyrexia [Unknown]
  - Inflammation [Unknown]
  - Local swelling [Unknown]
  - Rash papular [Unknown]
  - Grip strength decreased [Unknown]
  - Skin plaque [Unknown]
  - Erythema [Unknown]
  - Hyperkeratosis [Recovered/Resolved]
  - Parakeratosis [Unknown]
